FAERS Safety Report 8774493 (Version 1)
Quarter: 2012Q4

REPORT INFORMATION
  Report Type: 
  Country: US (occurrence: US)
  Receive Date: 20120907
  Receipt Date: 20120907
  Transmission Date: 20130627
  Serious: Yes (Hospitalization, Other)
  Sender: FDA-Public Use
  Company Number: US-TEVA-357484USA

PATIENT
  Age: 50 Year
  Sex: Male

DRUGS (2)
  1. QUETIAPINE FUMARATE [Suspect]
     Indication: INTENTIONAL OVERDOSE
     Dosage: DF = 400mg
     Route: 065
  2. ENOXAPARIN SODIUM [Suspect]
     Indication: INTENTIONAL OVERDOSE
     Dosage: DF = 100mg; total = 2000mg
     Route: 058

REACTIONS (4)
  - Intentional overdose [Recovering/Resolving]
  - Suicide attempt [Recovering/Resolving]
  - Unresponsive to stimuli [Recovering/Resolving]
  - Activated partial thromboplastin time prolonged [Recovering/Resolving]
